FAERS Safety Report 16095449 (Version 1)
Quarter: 2019Q1

REPORT INFORMATION
  Report Type: Spontaneous
  Country: US (occurrence: US)
  Receive Date: 20190320
  Receipt Date: 20190320
  Transmission Date: 20190418
  Serious: Yes (Hospitalization)
  Sender: FDA-Public Use
  Company Number: US-BRAINTREE LABORATORIES-190137

PATIENT
  Age: 75 Year
  Sex: Male
  Weight: 68.04 kg

DRUGS (1)
  1. SUPREP BOWEL PREP [Suspect]
     Active Substance: MAGNESIUM SULFATE\POTASSIUM SULFATE\SODIUM SULFATE
     Indication: COLONOSCOPY
     Dosage: 1.5X6 OZ. BOTTLE
     Route: 048
     Dates: start: 20190314, end: 20190314

REACTIONS (5)
  - Weight decreased [None]
  - Electrolyte depletion [None]
  - Supraventricular tachycardia [None]
  - Blood pressure decreased [None]
  - Dizziness [None]

NARRATIVE: CASE EVENT DATE: 20190314
